FAERS Safety Report 5118826-8 (Version None)
Quarter: 2006Q3

REPORT INFORMATION
  Report Type: 
  Country: None (occurrence: None)
  Receive Date: 20060801
  Receipt Date: 20060421
  Transmission Date: 20061208
  Serious: Yes (Other)
  Sender: FDA-Public Use
  Company Number: 445566

PATIENT
  Age: 54 Year
  Sex: Female

DRUGS (4)
  1. BONIVA [Suspect]
     Indication: OSTEOPENIA
     Dosage: 3 MG, 1 PER 3 MONTH INTRAVENOUS
     Route: 042
     Dates: start: 20060417
  2. MEPERIDINE HCL [Suspect]
     Indication: PAIN
     Dosage: ORAL
     Route: 048
     Dates: start: 20060415, end: 20060418
  3. PREDNISONE TAB [Concomitant]
  4. PRILOSEC [Concomitant]

REACTIONS (5)
  - ANXIETY [None]
  - BLOOD PRESSURE DECREASED [None]
  - HEART RATE INCREASED [None]
  - ILL-DEFINED DISORDER [None]
  - PAIN IN JAW [None]
